FAERS Safety Report 13871760 (Version 2)
Quarter: 2017Q3

REPORT INFORMATION
  Report Type: Report from Study
  Country: DE (occurrence: DE)
  Receive Date: 20170816
  Receipt Date: 20170828
  Transmission Date: 20171127
  Serious: Yes (Death, Hospitalization)
  Sender: FDA-Public Use
  Company Number: DE-CELGENEUS-DEU-20170800649

PATIENT
  Age: 68 Year
  Sex: Female
  Weight: 75 kg

DRUGS (2)
  1. ABRAXANE [Suspect]
     Active Substance: PACLITAXEL
     Indication: PANCREATIC CARCINOMA
     Dosage: 235 MILLIGRAM
     Route: 041
     Dates: start: 20170706, end: 20170721
  2. GEMCITABINE [Suspect]
     Active Substance: GEMCITABINE\GEMCITABINE HYDROCHLORIDE
     Indication: PANCREATIC CARCINOMA
     Dosage: 1880 MILLIGRAM
     Route: 065
     Dates: start: 20170706, end: 20170721

REACTIONS (1)
  - Blood bilirubin increased [Fatal]

NARRATIVE: CASE EVENT DATE: 20170721
